FAERS Safety Report 11008167 (Version 1)
Quarter: 2015Q2

REPORT INFORMATION
  Report Type: Spontaneous
  Country: US (occurrence: US)
  Receive Date: 20150410
  Receipt Date: 20150410
  Transmission Date: 20150821
  Serious: Yes (Death)
  Sender: FDA-Public Use
  Company Number: US-ASTRAZENECA-2014SE60032

PATIENT
  Age: 74 Year
  Sex: Male

DRUGS (2)
  1. JANUVIA [Suspect]
     Active Substance: SITAGLIPTIN PHOSPHATE
     Route: 065
  2. BYETTA [Suspect]
     Active Substance: EXENATIDE
     Route: 065

REACTIONS (2)
  - Cardiac arrest [Fatal]
  - Pancreatic carcinoma [Fatal]
